FAERS Safety Report 15801555 (Version 3)
Quarter: 2019Q1

REPORT INFORMATION
  Report Type: Spontaneous
  Country: FR (occurrence: FR)
  Receive Date: 20190109
  Receipt Date: 20190311
  Transmission Date: 20190417
  Serious: Yes (Hospitalization, Other)
  Sender: FDA-Public Use
  Company Number: FR-MYLANLABS-2019M1001370

PATIENT
  Age: 33 Year
  Sex: Male

DRUGS (6)
  1. NOXAFIL [Suspect]
     Active Substance: POSACONAZOLE
     Dosage: UNK, QD,UNK, 300 MG ONCE DAILY INCREASED TO 400 MG DAILY
     Route: 048
     Dates: start: 20161028, end: 20170104
  2. OMEPRAZOLE. [Suspect]
     Active Substance: OMEPRAZOLE
     Dosage: UNK
  3. NOXAFIL [Suspect]
     Active Substance: POSACONAZOLE
     Dosage: 500 MILLIGRAM, QD, 500MG (5 TABLETS) PER DAY FROM 05-JAN-2017
     Route: 048
     Dates: start: 20170105, end: 20170127
  4. OMEPRAZOLE. [Suspect]
     Active Substance: OMEPRAZOLE
     Indication: PRODUCT USED FOR UNKNOWN INDICATION
     Dosage: UNK, QD,SEVERAL YEARS, DAILY INTAKE
     Route: 048
     Dates: end: 20170127
  5. ATARAX [Suspect]
     Active Substance: HYDROXYZINE HYDROCHLORIDE
     Indication: HYPERSENSITIVITY
     Dosage: UNK
     Route: 048
     Dates: start: 20170117, end: 20170127
  6. NOXAFIL [Suspect]
     Active Substance: POSACONAZOLE
     Indication: ASPERGILLUS INFECTION
     Dosage: 600 MILLIGRAM, QD, (300 MG, BID)
     Route: 048
     Dates: start: 20161027, end: 20161027

REACTIONS (2)
  - Neutropenia [Recovered/Resolved]
  - Incorrect dosage administered [Unknown]

NARRATIVE: CASE EVENT DATE: 20170127
